FAERS Safety Report 12046753 (Version 1)
Quarter: 2016Q1

REPORT INFORMATION
  Report Type: Report from Study
  Country: US (occurrence: US)
  Receive Date: 20160208
  Receipt Date: 20160208
  Transmission Date: 20160526
  Serious: No
  Sender: FDA-Public Use
  Company Number: US-ABBVIE-15P-163-1370880-00

PATIENT
  Age: 19 Year
  Sex: Female

DRUGS (2)
  1. HUMIRA [Suspect]
     Active Substance: ADALIMUMAB
     Indication: CROHN^S DISEASE
     Route: 058
     Dates: start: 20140808
  2. PENICILLIN NOS [Suspect]
     Active Substance: PENICILLIN
     Indication: EAR INFECTION
     Route: 065

REACTIONS (5)
  - Sinusitis [Recovered/Resolved]
  - Pain [Recovered/Resolved]
  - Ear infection [Recovering/Resolving]
  - Nausea [Recovered/Resolved]
  - Crohn^s disease [Recovered/Resolved]

NARRATIVE: CASE EVENT DATE: 201503
